FAERS Safety Report 5244529-5 (Version None)
Quarter: 2007Q1

REPORT INFORMATION
  Report Type: 
  Country: None (occurrence: None)
  Receive Date: 20070222
  Receipt Date: 20070213
  Transmission Date: 20070707
  Serious: Yes (Other)
  Sender: FDA-Public Use
  Company Number: US-SANOFI-SYNTHELABO-A03200701288

PATIENT
  Sex: Female

DRUGS (10)
  1. PLAVIX [Suspect]
     Indication: ILIAC ARTERY STENOSIS
     Route: 048
  2. COUMADIN [Concomitant]
     Dosage: UNK
     Route: 048
     Dates: end: 20061201
  3. ASPIRIN [Suspect]
     Indication: ILIAC ARTERY STENOSIS
     Route: 048
  4. LOVENOX [Interacting]
     Indication: ILIAC ARTERY STENOSIS
     Route: 058
  5. TIZANIDINE HCL [Concomitant]
  6. OXYCODONE HCL [Concomitant]
  7. NEURONTIN [Concomitant]
     Dosage: UNK
     Route: 048
  8. WELLBUTRIN SR [Concomitant]
     Dosage: UNK
     Route: 048
  9. SINGULAIR [Concomitant]
     Dosage: UNK
     Route: 048
  10. TRAMADOL HCL [Concomitant]
     Dosage: UNK
     Route: 048

REACTIONS (1)
  - THROMBOSIS [None]
